FAERS Safety Report 7953308-7 (Version None)
Quarter: 2011Q4

REPORT INFORMATION
  Report Type: 
  Country: None (occurrence: None)
  Receive Date: 20111202
  Receipt Date: 20111124
  Transmission Date: 20120403
  Serious: Yes (Life-Threatening, Hospitalization)
  Sender: FDA-Public Use
  Company Number: DE-BRISTOL-MYERS SQUIBB COMPANY-15975154

PATIENT
  Age: 63 Year
  Sex: Male

DRUGS (3)
  1. METHOTREXATE [Suspect]
     Dates: start: 19891001
  2. ABATACEPT [Suspect]
     Dates: start: 20101201, end: 20101201
  3. ARAVA [Suspect]

REACTIONS (3)
  - INFUSION RELATED REACTION [None]
  - RESPIRATORY DISTRESS [None]
  - CARDIOVASCULAR DISORDER [None]
